FAERS Safety Report 22298753 (Version 5)
Quarter: 2024Q1

REPORT INFORMATION
  Report Type: Spontaneous
  Country: US (occurrence: US)
  Receive Date: 20230509
  Receipt Date: 20240213
  Transmission Date: 20240409
  Serious: No
  Sender: FDA-Public Use
  Company Number: US-PFIZER INC-PV202300082653

PATIENT
  Age: 65 Year
  Sex: Female
  Weight: 58.957 kg

DRUGS (1)
  1. INLYTA [Suspect]
     Active Substance: AXITINIB
     Indication: Renal cell carcinoma
     Dosage: 5 MG, 2X/DAY (1 TABLET (5 MG) IN THE MORNING AND 1 TABLET (5 MG) BEFORE BEDTIME)
     Route: 048

REACTIONS (3)
  - Product prescribing error [Unknown]
  - Fatigue [Recovered/Resolved]
  - Stress [Recovered/Resolved]
